FAERS Safety Report 5656722-8 (Version None)
Quarter: 2008Q1

REPORT INFORMATION
  Report Type: 
  Country: None (occurrence: None)
  Receive Date: 20080310
  Receipt Date: 20080207
  Transmission Date: 20080703
  Serious: No
  Sender: FDA-Public Use
  Company Number: US-BAYER-200813537NA

PATIENT
  Sex: Female

DRUGS (5)
  1. AVELOX [Suspect]
     Indication: INFECTION
     Route: 048
     Dates: start: 20080101
  2. CYMBALTA [Concomitant]
  3. KLONOPIN [Concomitant]
  4. ATENOLOL [Concomitant]
  5. LISINOPRIL/HTZ [Concomitant]
     Dates: start: 20080101

REACTIONS (2)
  - ANXIETY [None]
  - DEPRESSION [None]
